FAERS Safety Report 21601962 (Version 2)
Quarter: 2023Q1

REPORT INFORMATION
  Report Type: Report from Study
  Country: US (occurrence: US)
  Receive Date: 20221116
  Receipt Date: 20230316
  Transmission Date: 20230418
  Serious: Yes (Hospitalization, Other)
  Sender: FDA-Public Use
  Company Number: US-GILEAD-2022-0604814

PATIENT
  Age: 11 Year
  Sex: Female

DRUGS (6)
  1. AZTREONAM LYSINE [Suspect]
     Active Substance: AZTREONAM LYSINE
     Indication: Cystic fibrosis lung
     Dosage: 75 MG, TID, 28 DAYS ON AND 28 DAYS OFF
     Route: 055
     Dates: start: 20180228
  2. AZTREONAM LYSINE [Suspect]
     Active Substance: AZTREONAM LYSINE
     Indication: Cystic fibrosis
  3. PULMOZYME [Concomitant]
     Active Substance: DORNASE ALFA
  4. ALBUTEROL SULFATE [Concomitant]
     Active Substance: ALBUTEROL SULFATE
  5. SODIUM CHLORIDE [Concomitant]
     Active Substance: SODIUM CHLORIDE
  6. TOBRAMYCIN [Concomitant]
     Active Substance: TOBRAMYCIN
     Dosage: 300MG EVERY 12 HOURS FOR 28 DAYS ON EVERY OTHER MONTH

REACTIONS (3)
  - Pneumonia [Recovered/Resolved]
  - Gastrointestinal tube insertion [Recovered/Resolved]
  - Hernia [Recovered/Resolved]

NARRATIVE: CASE EVENT DATE: 20230204
